FAERS Safety Report 8438192-X (Version None)
Quarter: 2012Q2

REPORT INFORMATION
  Report Type: 
  Country: None (occurrence: None)
  Receive Date: 20120614
  Receipt Date: 20120601
  Transmission Date: 20120825
  Serious: Yes (Other)
  Sender: FDA-Public Use
  Company Number: CHPA2012US011774

PATIENT
  Age: 52 Year
  Sex: Female

DRUGS (1)
  1. EXCEDRIN EXTRA STRENGTH TABLETS [Suspect]
     Indication: PAIN
     Dosage: 2 TO 4 AS NEEDED
     Route: 048
     Dates: end: 20120101

REACTIONS (5)
  - ROAD TRAFFIC ACCIDENT [None]
  - BREAST MASS [None]
  - NECK PAIN [None]
  - FIBROMYALGIA [None]
  - HERPES ZOSTER [None]
